FAERS Safety Report 9475494 (Version 1)
Quarter: 2013Q3

REPORT INFORMATION
  Report Type: Spontaneous
  Country: US (occurrence: US)
  Receive Date: 20130826
  Receipt Date: 20130826
  Transmission Date: 20140515
  Serious: No
  Sender: FDA-Public Use
  Company Number: US-009507513-1308USA000118

PATIENT
  Age: 60 Year
  Sex: Female

DRUGS (2)
  1. ZIOPTAN [Suspect]
     Dosage: 2 GTT, QPM
     Route: 047
     Dates: start: 20130722
  2. RESTASIS [Concomitant]

REACTIONS (5)
  - Swelling face [Not Recovered/Not Resolved]
  - Rash [Not Recovered/Not Resolved]
  - Eye swelling [Not Recovered/Not Resolved]
  - Dry eye [Not Recovered/Not Resolved]
  - Hypersensitivity [Unknown]
